FAERS Safety Report 5388845-5 (Version None)
Quarter: 2007Q3

REPORT INFORMATION
  Report Type: 
  Country: None (occurrence: None)
  Receive Date: 20070716
  Receipt Date: 20070703
  Transmission Date: 20080115
  Serious: Yes (Hospitalization)
  Sender: FDA-Public Use
  Company Number: FR-SHR-FR-2007-019100

PATIENT
  Age: 47 Year
  Sex: Female
  Weight: 63 kg

DRUGS (5)
  1. BETASERON [Suspect]
     Indication: RELAPSING-REMITTING MULTIPLE SCLEROSIS
     Dosage: 250 A?G, EVERY 2D
     Route: 058
     Dates: start: 20070308, end: 20070601
  2. XANAX [Concomitant]
     Indication: ANXIETY
     Dosage: 1.5 MG/D, UNK
     Route: 048
  3. EFFEXOR [Concomitant]
     Dosage: 37.5 MG/D, UNK
     Route: 048
  4. OMEPRAZOLE [Concomitant]
     Dosage: 20 MG/D, UNK
     Route: 048
  5. LEVOTHYROXINE SODIUM [Concomitant]
     Dosage: 50 A?G/DAY, UNK
     Route: 048

REACTIONS (9)
  - DERMATITIS [None]
  - FALL [None]
  - HALLUCINATION [None]
  - LEUKOPENIA [None]
  - MUSCLE SPASMS [None]
  - MYALGIA [None]
  - NEUROSIS [None]
  - NEUTROPENIA [None]
  - TRANSAMINASES INCREASED [None]
